FAERS Safety Report 9264268 (Version 1)
Quarter: 2013Q2

REPORT INFORMATION
  Report Type: Spontaneous
  Country: VE (occurrence: VE)
  Receive Date: 20130430
  Receipt Date: 20130430
  Transmission Date: 20140414
  Serious: Yes (Other)
  Sender: FDA-Public Use
  Company Number: VE-PFIZER INC-2013120381

PATIENT
  Age: 77 Year
  Sex: Female

DRUGS (1)
  1. CADUET [Suspect]
     Dosage: UNK, 1X/DAY
     Route: 048
     Dates: start: 2003

REACTIONS (1)
  - Cardiac disorder [Recovered/Resolved]
